FAERS Safety Report 6907911-3 (Version None)
Quarter: 2010Q3

REPORT INFORMATION
  Report Type: 
  Country: None (occurrence: None)
  Receive Date: 20100805
  Receipt Date: 20100727
  Transmission Date: 20110219
  Serious: Yes (Other)
  Sender: FDA-Public Use
  Company Number: PHHY2010AU37764

PATIENT
  Sex: Female
  Weight: 76 kg

DRUGS (3)
  1. ACLASTA [Suspect]
     Indication: OSTEOPOROSIS
     Dosage: 5 MG
     Route: 042
     Dates: start: 20100615, end: 20100615
  2. MS CONTIN [Concomitant]
     Indication: FRACTURE
  3. CAPADEX [Concomitant]
     Indication: FRACTURE

REACTIONS (4)
  - ARTHRALGIA [None]
  - ASTHMA [None]
  - BACK PAIN [None]
  - NAUSEA [None]
